FAERS Safety Report 13303105 (Version 1)
Quarter: 2017Q1

REPORT INFORMATION
  Report Type: Spontaneous
  Country: US (occurrence: US)
  Receive Date: 20170307
  Receipt Date: 20170307
  Transmission Date: 20170428
  Serious: Yes (Other)
  Sender: FDA-Public Use
  Company Number: US-SHIRE-US201704658

PATIENT
  Age: 14 Year
  Sex: Male

DRUGS (1)
  1. ELAPRASE [Suspect]
     Active Substance: IDURSULFASE
     Indication: MUCOPOLYSACCHARIDOSIS II
     Dosage: 24 MG, 1X/WEEK
     Dates: start: 20100401

REACTIONS (4)
  - Seizure [Unknown]
  - Developmental regression [Unknown]
  - Constipation [Unknown]
  - Disease progression [Unknown]

NARRATIVE: CASE EVENT DATE: 20170207
